FAERS Safety Report 8017848-7 (Version None)
Quarter: 2012Q1

REPORT INFORMATION
  Report Type: 
  Country: None (occurrence: None)
  Receive Date: 20120103
  Receipt Date: 20111222
  Transmission Date: 20120608
  Serious: No
  Sender: FDA-Public Use
  Company Number: US-PFIZER INC-2011312511

PATIENT
  Sex: Female

DRUGS (8)
  1. PENICILLIN G PROCAINE [Suspect]
     Dosage: UNK
  2. RELPAX [Concomitant]
     Dosage: 40 MG, UNK
  3. IPRATROPIUM [Concomitant]
     Dosage: UNK
  4. LEVOTHYROXINE [Concomitant]
     Dosage: 25 UG, UNK
  5. ONDANSETRON [Concomitant]
     Dosage: 4 MG, UNK
  6. PROAIR HFA [Concomitant]
     Dosage: UNK
  7. GEMZAR [Concomitant]
     Dosage: 1 G, UNK
  8. OMEPRAZOLE [Concomitant]
     Dosage: 40 MG, UNK

REACTIONS (1)
  - DRUG HYPERSENSITIVITY [None]
